FAERS Safety Report 10490424 (Version 3)
Quarter: 2015Q1

REPORT INFORMATION
  Report Type: Report from Study
  Country: CN (occurrence: CN)
  Receive Date: 20141002
  Receipt Date: 20150306
  Transmission Date: 20150720
  Serious: Yes (Other)
  Sender: FDA-Public Use
  Company Number: CN-ASTELLAS-2014US013727

PATIENT
  Age: 76 Year
  Sex: Female

DRUGS (2)
  1. ERLOTINIB [Suspect]
     Active Substance: ERLOTINIB
     Indication: NON-SMALL CELL LUNG CANCER
     Route: 048
     Dates: start: 20101215
  2. ERLOTINIB [Suspect]
     Active Substance: ERLOTINIB
     Route: 048

REACTIONS (6)
  - Diarrhoea [Unknown]
  - Pleural effusion [Unknown]
  - Pulmonary oedema [Unknown]
  - Rash [Unknown]
  - Malignant neoplasm progression [Unknown]
  - Neoplasm [Unknown]

NARRATIVE: CASE EVENT DATE: 20140828
